FAERS Safety Report 9810623 (Version 1)
Quarter: 2014Q1

REPORT INFORMATION
  Report Type: Spontaneous
  Country: US (occurrence: US)
  Receive Date: 20140110
  Receipt Date: 20140110
  Transmission Date: 20141002
  Serious: Yes (Hospitalization)
  Sender: FDA-Public Use
  Company Number: US-SANOFI-AVENTIS-2013SA089365

PATIENT
  Age: 79 Year
  Sex: Female
  Weight: 65.31 kg

DRUGS (15)
  1. PLAVIX [Suspect]
     Indication: STENT PLACEMENT
     Route: 065
  2. PLAVIX [Suspect]
     Indication: STENT PLACEMENT
     Route: 065
     Dates: start: 201209
  3. WARFARIN SODIUM [Suspect]
     Indication: ATRIAL FIBRILLATION
     Route: 065
  4. COUMADIN [Concomitant]
  5. CRESTOR [Concomitant]
  6. CYANOCOBALAMIN/FOLIC ACID/PYRIDOXINE [Concomitant]
  7. VITAMIN D [Concomitant]
     Dosage: EVERY 2 WEEKS: DOSE
     Route: 065
  8. HYDRALAZINE [Concomitant]
  9. HYDROCHLOROTHIAZIDE [Concomitant]
  10. POTASSIUM [Concomitant]
  11. ULTRAM [Concomitant]
  12. XANAX [Concomitant]
     Route: 065
  13. HYDROCODONE [Concomitant]
     Route: 065
  14. ASPIRIN [Concomitant]
     Route: 065
  15. AMIODARONE [Concomitant]

REACTIONS (1)
  - Myocardial infarction [Unknown]
